FAERS Safety Report 4625257-3 (Version None)
Quarter: 2005Q2

REPORT INFORMATION
  Report Type: 
  Country: None (occurrence: None)
  Receive Date: 20050325
  Receipt Date: 20050127
  Transmission Date: 20051028
  Serious: No
  Sender: FDA-Public Use
  Company Number: USA050189307

PATIENT
  Age: 73 Year
  Sex: Male

DRUGS (2)
  1. FORTEO [Suspect]
     Dates: start: 20041220
  2. CALCIUM GLUCONATE [Concomitant]

REACTIONS (5)
  - ASTHENIA [None]
  - LIMB DISCOMFORT [None]
  - MEMORY IMPAIRMENT [None]
  - MUSCLE DISORDER [None]
  - RASH MACULAR [None]
